FAERS Safety Report 5090167-7 (Version None)
Quarter: 2006Q3

REPORT INFORMATION
  Report Type: 
  Country: None (occurrence: None)
  Receive Date: 20060828
  Receipt Date: 20060818
  Transmission Date: 20061208
  Serious: Yes (Hospitalization)
  Sender: FDA-Public Use
  Company Number: PHRM2006FR02350

PATIENT
  Age: 69 Year
  Sex: Female
  Weight: 56 kg

DRUGS (6)
  1. TAREG [Suspect]
     Indication: HYPERTENSION
     Dosage: 80 MG/DAY
     Route: 048
     Dates: end: 20060323
  2. NABUCOX [Suspect]
     Indication: BACK PAIN
     Route: 048
     Dates: start: 20060308, end: 20060323
  3. FORLAX [Suspect]
     Indication: COLONOSCOPY
     Dosage: 1 DF, UNK
     Route: 048
     Dates: start: 20060322
  4. MEDIVEINE [Concomitant]
  5. TRAMADOL (MONOCRIXO) [Concomitant]
  6. HYDROCORTISONE [Concomitant]

REACTIONS (11)
  - ALBUMINURIA [None]
  - BACK PAIN [None]
  - BLOOD CREATININE INCREASED [None]
  - CREATININE RENAL CLEARANCE DECREASED [None]
  - DEHYDRATION [None]
  - DIARRHOEA [None]
  - DRUG INTERACTION POTENTIATION [None]
  - HYPOTENSION [None]
  - HYPOVOLAEMIA [None]
  - RENAL FAILURE ACUTE [None]
  - RENAL TUBULAR DISORDER [None]
